FAERS Safety Report 20520028 (Version 1)
Quarter: 2022Q1

REPORT INFORMATION
  Report Type: Spontaneous
  Country: ES (occurrence: ES)
  Receive Date: 20220225
  Receipt Date: 20220225
  Transmission Date: 20220423
  Serious: Yes (Other)
  Sender: FDA-Public Use
  Company Number: ES-JUBILANT CADISTA PHARMACEUTICALS-2022JUB00036

PATIENT
  Age: 43 Year
  Sex: Male

DRUGS (1)
  1. LEVETIRACETAM [Suspect]
     Active Substance: LEVETIRACETAM
     Indication: Generalised tonic-clonic seizure
     Dosage: 1000 MG, 2X/DAY
     Route: 065

REACTIONS (3)
  - Mania [Recovered/Resolved]
  - Delusion [Recovered/Resolved]
  - Hallucination, visual [Recovered/Resolved]
